FAERS Safety Report 4898148-0 (Version None)
Quarter: 2006Q1

REPORT INFORMATION
  Report Type: 
  Country: None (occurrence: None)
  Receive Date: 20060201
  Receipt Date: 20050824
  Transmission Date: 20060701
  Serious: Yes (Hospitalization)
  Sender: FDA-Public Use
  Company Number: BE-ABBOTT-05P-013-0309210-00

PATIENT
  Sex: Male

DRUGS (1)
  1. HUMIRA [Suspect]
     Indication: RHEUMATOID ARTHRITIS
     Route: 058
     Dates: start: 20050329, end: 20050601

REACTIONS (7)
  - EPILEPSY [None]
  - GAIT DEVIATION [None]
  - INCONTINENCE [None]
  - MENINGITIS TUBERCULOUS [None]
  - NIGHT SWEATS [None]
  - RHEUMATOID ARTHRITIS [None]
  - WEIGHT DECREASED [None]
